FAERS Safety Report 16206463 (Version 1)
Quarter: 2019Q2

REPORT INFORMATION
  Report Type: Spontaneous
  Country: IT (occurrence: IT)
  Receive Date: 20190417
  Receipt Date: 20190417
  Transmission Date: 20190711
  Serious: Yes (Death)
  Sender: FDA-Public Use
  Company Number: IT-TEVA-2019-IT-1037975

PATIENT
  Age: 73 Year
  Sex: Male

DRUGS (6)
  1. ONDANSETRON HYDROCHLORIDE. [Concomitant]
     Active Substance: ONDANSETRON HYDROCHLORIDE
     Route: 042
     Dates: start: 20190225, end: 20190225
  2. IVEMEND 150 MG POWDER FOR SOLUTION FOR INFUSION [Concomitant]
     Route: 042
     Dates: start: 20190225, end: 20190225
  3. DECADRON 4 MG/1 ML SOLUZIONE INIETTABILE - 1 FIALA DA 1 ML [Concomitant]
     Route: 042
     Dates: start: 20190225, end: 20190225
  4. CISPLATIN. [Suspect]
     Active Substance: CISPLATIN
     Indication: OROPHARYNGEAL SQUAMOUS CELL CARCINOMA
     Route: 042
     Dates: start: 20190225, end: 20190225
  5. CETUXIMAB. [Suspect]
     Active Substance: CETUXIMAB
     Indication: OROPHARYNGEAL SQUAMOUS CELL CARCINOMA
     Route: 042
     Dates: start: 20190225, end: 20190225
  6. FLUOROURACIL. [Suspect]
     Active Substance: FLUOROURACIL
     Indication: OROPHARYNGEAL SQUAMOUS CELL CARCINOMA
     Route: 042
     Dates: start: 20190225, end: 20190301

REACTIONS (3)
  - Septic shock [Fatal]
  - Neutropenia [Fatal]
  - Renal failure [Fatal]

NARRATIVE: CASE EVENT DATE: 20190301
